FAERS Safety Report 18223563 (Version 1)
Quarter: 2020Q3

REPORT INFORMATION
  Report Type: Spontaneous
  Country: US (occurrence: US)
  Receive Date: 20200901
  Receipt Date: 20200901
  Transmission Date: 20201103
  Serious: Yes (Hospitalization)
  Sender: FDA-Public Use
  Company Number: None

PATIENT
  Age: 27 Year
  Sex: Female

DRUGS (35)
  1. BENLYSTA [Suspect]
     Active Substance: BELIMUMAB
     Indication: PRODUCT USED FOR UNKNOWN INDICATION
     Route: 058
     Dates: start: 20200620
  2. CYMBALTA [Concomitant]
     Active Substance: DULOXETINE HYDROCHLORIDE
  3. MYCOPHENOLAT [Concomitant]
     Active Substance: MYCOPHENOLATE MOFETIL
  4. PLAQUENIL [Concomitant]
     Active Substance: HYDROXYCHLOROQUINE SULFATE
  5. VALACYCLOVIR [Concomitant]
     Active Substance: VALACYCLOVIR HYDROCHLORIDE
  6. CALCIUM+D [Concomitant]
     Active Substance: CALCIUM\VITAMIN D
  7. HYDROCO/APAP [Concomitant]
     Active Substance: ACETAMINOPHEN\HYDROCODONE
  8. HYDROCHLOR [Concomitant]
  9. COLCHICINE. [Concomitant]
     Active Substance: COLCHICINE
  10. DESLORATADIN [Concomitant]
     Active Substance: DESLORATADINE
  11. DOXYCYCLINE MONOHYDR [Concomitant]
  12. LOSARTAN POT [Concomitant]
     Active Substance: LOSARTAN POTASSIUM
  13. METHYLPRED [Concomitant]
     Active Substance: METHYLPREDNISOLONE
  14. APAP/CODEINE [Concomitant]
     Active Substance: ACETAMINOPHEN\CODEINE PHOSPHATE
  15. GABAPENTIN. [Concomitant]
     Active Substance: GABAPENTIN
  16. HYOSCYAMINE. [Concomitant]
     Active Substance: HYOSCYAMINE
  17. BENZONATATE. [Concomitant]
     Active Substance: BENZONATATE
  18. CEPHALEXIN. [Concomitant]
     Active Substance: CEPHALEXIN
  19. CYCLOSPORINE. [Concomitant]
     Active Substance: CYCLOSPORINE
  20. ESCITALOPRAM [Concomitant]
     Active Substance: ESCITALOPRAM OXALATE
  21. LISINOPRIL. [Concomitant]
     Active Substance: LISINOPRIL
  22. METHOCARBAM [Concomitant]
     Active Substance: METHOCARBAMOL
  23. TRAZODONE [Concomitant]
     Active Substance: TRAZODONE HYDROCHLORIDE
  24. ACYCLOVIR. [Concomitant]
     Active Substance: ACYCLOVIR
  25. AMLODIPINE [Concomitant]
     Active Substance: AMLODIPINE BESYLATE
  26. FOLIC ACID. [Concomitant]
     Active Substance: FOLIC ACID
  27. MEDROL [Concomitant]
     Active Substance: METHYLPREDNISOLONE
  28. NORETHINDRON [Concomitant]
  29. PANTOPRAZOLE [Concomitant]
     Active Substance: PANTOPRAZOLE
  30. PREDNISONE. [Concomitant]
     Active Substance: PREDNISONE
  31. ALBUTEROL AER [Concomitant]
     Active Substance: ALBUTEROL
  32. BACTRIM [Concomitant]
     Active Substance: SULFAMETHOXAZOLE\TRIMETHOPRIM
  33. CYCLOBENZAPR [Concomitant]
     Active Substance: CYCLOBENZAPRINE
  34. LIDOCAINE. [Concomitant]
     Active Substance: LIDOCAINE
  35. TRAMADOL HCL [Concomitant]
     Active Substance: TRAMADOL HYDROCHLORIDE

REACTIONS (1)
  - Hospitalisation [None]

NARRATIVE: CASE EVENT DATE: 20200901
